FAERS Safety Report 4633206-7 (Version None)
Quarter: 2005Q2

REPORT INFORMATION
  Report Type: 
  Country: None (occurrence: None)
  Receive Date: 20050408
  Receipt Date: 20050330
  Transmission Date: 20051028
  Serious: Yes (Hospitalization, Other)
  Sender: FDA-Public Use
  Company Number: 2005052742

PATIENT
  Age: 64 Year
  Sex: Male

DRUGS (6)
  1. TAHOR (ATORVASTATIN) [Suspect]
     Indication: ILL-DEFINED DISORDER
     Dosage: ORAL
     Route: 048
  2. PROPRANOLOL [Suspect]
     Indication: ILL-DEFINED DISORDER
     Dosage: ORAL
     Route: 048
  3. MIGRALGINE (AMYLOCAINE HYDROCHLORIDE, CAFFEINE, CODEINE, PHENAZONE) [Suspect]
     Indication: MIGRAINE
     Dosage: ORAL
     Route: 048
  4. TRIMETAZIDINE HYDROCHLORIDE (TRIMETAZIDINE HYDROCHLORIDE) [Suspect]
     Indication: ILL-DEFINED DISORDER
     Dosage: ORAL
     Route: 048
  5. ACETYLSALICYLIC ACID SRT [Suspect]
     Indication: ILL-DEFINED DISORDER
     Dosage: ORAL
     Route: 048
  6. TRAVOPROST (TRAVOPROST) [Suspect]
     Indication: GLAUCOMA
     Dosage: TOPICAL
     Route: 061

REACTIONS (4)
  - AORTIC ANEURYSM [None]
  - AORTIC DISORDER [None]
  - APHASIA [None]
  - ARTERIAL THROMBOSIS [None]
